FAERS Safety Report 25232118 (Version 3)
Quarter: 2025Q2

REPORT INFORMATION
  Report Type: Spontaneous
  Country: JP (occurrence: JP)
  Receive Date: 20250423
  Receipt Date: 20250626
  Transmission Date: 20250717
  Serious: Yes (Other)
  Sender: APELLIS PHARMACEUTICALS
  Company Number: JP-BIOVITRUM-2024-JP-010648

PATIENT

DRUGS (1)
  1. EMPAVELI [Suspect]
     Active Substance: PEGCETACOPLAN
     Indication: Paroxysmal nocturnal haemoglobinuria
     Route: 058

REACTIONS (13)
  - Decreased appetite [Recovering/Resolving]
  - Iron deficiency anaemia [Recovered/Resolved]
  - SARS-CoV-2 test positive [Recovered/Resolved]
  - Pollakiuria [Unknown]
  - Malaise [Unknown]
  - Muscular weakness [Unknown]
  - Gait disturbance [Unknown]
  - Balance disorder [Recovering/Resolving]
  - Head injury [Recovering/Resolving]
  - Platelet count decreased [Unknown]
  - Dementia Alzheimer^s type [Not Recovered/Not Resolved]
  - Nasopharyngitis [Unknown]
  - Skin discolouration [Recovered/Resolved]

NARRATIVE: CASE EVENT DATE: 20241219
